FAERS Safety Report 8489964-7 (Version None)
Quarter: 2012Q3

REPORT INFORMATION
  Report Type: 
  Country: None (occurrence: None)
  Receive Date: 20120705
  Receipt Date: 20120626
  Transmission Date: 20120928
  Serious: Yes (Death, Life-Threatening, Other)
  Sender: FDA-Public Use
  Company Number: US-SANOFI-AVENTIS-2012SA040608

PATIENT
  Sex: Female
  Weight: 90.7 kg

DRUGS (22)
  1. ZOLOFT [Interacting]
     Route: 065
  2. ZAFIRLUKAST [Concomitant]
  3. ZOLPIDEM TARTRATE [Concomitant]
  4. LORAZEPAM [Concomitant]
  5. NYSTATIN [Concomitant]
  6. ASPIRIN [Concomitant]
  7. WARFARIN SODIUM [Concomitant]
  8. FUROSEMIDE [Concomitant]
  9. AMIODARONE HYDROCHLORIDE [Interacting]
     Route: 065
  10. DOCUSATE SODIUM [Concomitant]
  11. AZITHROMYCIN [Interacting]
     Indication: BRONCHITIS
     Route: 048
  12. SPIRONOLACTONE [Concomitant]
  13. GLYBURIDE [Suspect]
     Route: 065
  14. VISTARIL [Interacting]
     Route: 065
  15. METOLAZONE [Concomitant]
  16. TUSSIONEX /OLD FORM/ ^PENNWALT^ [Concomitant]
  17. DEXAMETHASONE ACETATE [Concomitant]
  18. AZITHROMYCIN [Interacting]
     Indication: CELLULITIS
     Route: 048
  19. LEVOTHYROXINE SODIUM [Concomitant]
  20. DIPHENHYDRAMINE HCL [Interacting]
     Route: 065
  21. SERETIDE MITE [Concomitant]
  22. LOSARTAN POTASSIUM [Concomitant]

REACTIONS (4)
  - ISCHAEMIC CARDIOMYOPATHY [None]
  - DRUG INTERACTION [None]
  - RASH [None]
  - HYPERSENSITIVITY [None]
